FAERS Safety Report 19853736 (Version 1)
Quarter: 2021Q3

REPORT INFORMATION
  Report Type: Spontaneous
  Country: FR (occurrence: FR)
  Receive Date: 20210919
  Receipt Date: 20210919
  Transmission Date: 20211014
  Serious: Yes (Hospitalization, Other)
  Sender: FDA-Public Use
  Company Number: FR-ORGANON-1912FRA008750

PATIENT
  Sex: Female
  Weight: 47 kg

DRUGS (1)
  1. NEXPLANON [Suspect]
     Active Substance: ETONOGESTREL
     Indication: CONTRACEPTION
     Dosage: 1 DOSAGE FORM (68 MILLIGRAM IMPLANT) FOR SUBCUTANEOUS USE; INNER SIDE OF HER RIGHT ARM
     Route: 058
     Dates: start: 20190621

REACTIONS (30)
  - Dyspnoea [Not Recovered/Not Resolved]
  - Chest pain [Unknown]
  - Device embolisation [Not Recovered/Not Resolved]
  - Initial insomnia [Unknown]
  - Hypoaesthesia [Unknown]
  - Hot flush [Unknown]
  - Chest pain [Not Recovered/Not Resolved]
  - Complication of device removal [Not Recovered/Not Resolved]
  - Intercostal neuralgia [Unknown]
  - Palpitations [Unknown]
  - Odynophagia [Unknown]
  - Tonsillar hypertrophy [Unknown]
  - Myalgia [Unknown]
  - Anxiety [Unknown]
  - Device kink [Not Recovered/Not Resolved]
  - Viral pharyngitis [Unknown]
  - Device dislocation [Not Recovered/Not Resolved]
  - Dysphagia [Recovered/Resolved]
  - Device placement issue [Not Recovered/Not Resolved]
  - Respiratory disorder [Unknown]
  - Panic attack [Unknown]
  - Paraesthesia [Unknown]
  - Complication associated with device [Recovered/Resolved]
  - Migraine [Not Recovered/Not Resolved]
  - Sensation of foreign body [Unknown]
  - Infertility female [Not Recovered/Not Resolved]
  - Malaise [Unknown]
  - Sexual dysfunction [Unknown]
  - Dizziness [Unknown]
  - Device breakage [Not Recovered/Not Resolved]

NARRATIVE: CASE EVENT DATE: 2019
